FAERS Safety Report 4604406-7 (Version None)
Quarter: 2005Q1

REPORT INFORMATION
  Report Type: 
  Country: None (occurrence: None)
  Receive Date: 20050309
  Receipt Date: 20050309
  Transmission Date: 20050727
  Serious: No
  Sender: FDA-Public Use
  Company Number: None

PATIENT

DRUGS (1)
  1. DURAGESIC-100 [Suspect]
     Indication: BACK PAIN
     Dosage: 25 MG /HR PATCH

REACTIONS (3)
  - APPLICATION SITE VESICLES [None]
  - DYSPNOEA [None]
  - PARAESTHESIA [None]
